FAERS Safety Report 7957177-0 (Version None)
Quarter: 2011Q4

REPORT INFORMATION
  Report Type: 
  Country: None (occurrence: None)
  Receive Date: 20111205
  Receipt Date: 20111129
  Transmission Date: 20120403
  Serious: Yes (Hospitalization)
  Sender: FDA-Public Use
  Company Number: US-ROCHE-GNE289150

PATIENT
  Sex: Female
  Weight: 96.248 kg

DRUGS (17)
  1. OMALIZUMAB [Suspect]
     Indication: ASTHMA
     Dosage: UNK
     Route: 058
     Dates: start: 20090301
  2. OMALIZUMAB [Suspect]
     Dosage: 750 MG, Q4W
     Dates: start: 20090701, end: 20101006
  3. ADVAIR DISKUS 100/50 [Concomitant]
     Indication: ASTHMA
     Dosage: UNK
  4. CLARITIN [Concomitant]
     Indication: HYPERSENSITIVITY
     Dosage: UNK
  5. ZYRTEC [Concomitant]
     Indication: HYPERSENSITIVITY
     Dosage: UNK
  6. MULTI-VITAMINS [Concomitant]
     Indication: PREGNANCY
     Dosage: UNK
  7. NASACORT AQ [Concomitant]
     Indication: HYPERSENSITIVITY
     Dosage: UNK
  8. IBUPROFEN [Concomitant]
     Indication: MIGRAINE
     Dosage: UNK
  9. ALBUTEROL [Concomitant]
     Indication: ASTHMA
     Dosage: UNK
  10. PHENERGAN [Concomitant]
     Indication: MIGRAINE
     Dosage: UNK
  11. SUDAFED 12 HOUR [Concomitant]
     Indication: MIGRAINE
     Dosage: UNK
  12. BENADRYL [Concomitant]
     Indication: HYPERSENSITIVITY
     Dosage: UNK
  13. AMBIEN CR [Concomitant]
     Indication: INSOMNIA
     Dosage: UNK
  14. OMALIZUMAB [Suspect]
     Dosage: 375 MG, Q2W
     Dates: start: 20090527, end: 20090617
  15. ZOLOFT [Concomitant]
     Indication: DEPRESSION
     Dosage: UNK
  16. ACETAMINOPHEN [Concomitant]
     Indication: MIGRAINE
     Dosage: UNK
  17. FISH OIL [Concomitant]
     Indication: HYPERCHOLESTEROLAEMIA

REACTIONS (2)
  - NEPHROLITHIASIS [None]
  - MATERNAL EXPOSURE DURING PREGNANCY [None]
